FAERS Safety Report 5000206-7 (Version None)
Quarter: 2006Q2

REPORT INFORMATION
  Report Type: 
  Country: None (occurrence: None)
  Receive Date: 20060511
  Receipt Date: 20060409
  Transmission Date: 20061013
  Serious: Yes (Death, Hospitalization)
  Sender: FDA-Public Use
  Company Number: US-AMGEN-US175605

PATIENT
  Sex: Female

DRUGS (21)
  1. ENBREL [Suspect]
     Indication: RHEUMATOID ARTHRITIS
     Route: 058
     Dates: start: 20060131, end: 20060326
  2. METHOTREXATE [Suspect]
  3. ARAVA [Suspect]
  4. PREDNISONE TAB [Suspect]
  5. ADVAIR DISKUS 100/50 [Concomitant]
  6. LINEZOLID [Concomitant]
  7. COMBIVENT [Concomitant]
  8. DEMADEX [Concomitant]
  9. DETROL [Concomitant]
  10. ELAVIL [Concomitant]
  11. LANOXIN [Concomitant]
  12. NEURONTIN [Concomitant]
  13. NORVASC [Concomitant]
  14. OXYCONTIN [Concomitant]
  15. PHENERGAN HCL [Concomitant]
  16. PREMARIN [Concomitant]
  17. PRINIVIL [Concomitant]
  18. PROTONIX [Concomitant]
  19. PROZAC [Concomitant]
  20. TOPROL-XL [Concomitant]
  21. XANAX [Concomitant]

REACTIONS (7)
  - CANDIDIASIS [None]
  - HYPOTENSION [None]
  - LOSS OF CONSCIOUSNESS [None]
  - PNEUMONIA [None]
  - RESPIRATORY FAILURE [None]
  - SEPSIS [None]
  - STAPHYLOCOCCAL INFECTION [None]
